FAERS Safety Report 22050629 (Version 3)
Quarter: 2023Q4

REPORT INFORMATION
  Report Type: Report from Study
  Country: DE (occurrence: DE)
  Receive Date: 20230301
  Receipt Date: 20231212
  Transmission Date: 20240110
  Serious: No
  Sender: FDA-Public Use
  Company Number: DE-TAKEDA-2022TUS083528

PATIENT
  Age: 24 Year
  Sex: Male

DRUGS (12)
  1. TEDUGLUTIDE [Suspect]
     Active Substance: TEDUGLUTIDE
     Indication: Short-bowel syndrome
     Dosage: 4.2 MILLIGRAM, QD
     Route: 042
     Dates: start: 20180921, end: 20221006
  2. TEDUGLUTIDE [Suspect]
     Active Substance: TEDUGLUTIDE
     Indication: Short-bowel syndrome
     Dosage: 4.2 MILLIGRAM, QD
     Route: 042
     Dates: start: 20180921, end: 20221006
  3. TEDUGLUTIDE [Suspect]
     Active Substance: TEDUGLUTIDE
     Indication: Short-bowel syndrome
     Dosage: 4.2 MILLIGRAM, QD
     Route: 042
     Dates: start: 20180921, end: 20221006
  4. TEDUGLUTIDE [Suspect]
     Active Substance: TEDUGLUTIDE
     Indication: Short-bowel syndrome
     Dosage: 4.2 MILLIGRAM, QD
     Route: 042
     Dates: start: 20180921, end: 20221006
  5. TEDUGLUTIDE [Suspect]
     Active Substance: TEDUGLUTIDE
     Dosage: 4.2 MILLIGRAM, 4/WEEK
     Route: 042
     Dates: start: 20221007
  6. TEDUGLUTIDE [Suspect]
     Active Substance: TEDUGLUTIDE
     Dosage: 4.2 MILLIGRAM, 4/WEEK
     Route: 042
     Dates: start: 20221007
  7. TEDUGLUTIDE [Suspect]
     Active Substance: TEDUGLUTIDE
     Dosage: 4.2 MILLIGRAM, 4/WEEK
     Route: 042
     Dates: start: 20221007
  8. TEDUGLUTIDE [Suspect]
     Active Substance: TEDUGLUTIDE
     Dosage: 4.2 MILLIGRAM, 4/WEEK
     Route: 042
     Dates: start: 20221007
  9. CHOLESTYRAMINE [Concomitant]
     Active Substance: CHOLESTYRAMINE
     Indication: Diarrhoea
     Dosage: 4 GRAM, QD
     Route: 048
     Dates: start: 20221006
  10. PROPOFOL [Concomitant]
     Active Substance: PROPOFOL
     Indication: Endoscopy
     Dosage: 360 MILLIGRAM, SINGLE
     Route: 042
     Dates: start: 20210827, end: 20210827
  11. PROPOFOL [Concomitant]
     Active Substance: PROPOFOL
     Indication: Colonoscopy
     Dosage: 500 MILLIGRAM, SINGLE
     Route: 042
     Dates: start: 20221006, end: 20221006
  12. PROPOFOL [Concomitant]
     Active Substance: PROPOFOL
     Indication: Gastrointestinal scan
     Dosage: 640 MILLIGRAM, SINGLE
     Route: 042
     Dates: start: 20230706, end: 20230706

REACTIONS (1)
  - Gastric polyps [Recovered/Resolved]

NARRATIVE: CASE EVENT DATE: 20221006
